FAERS Safety Report 18655957 (Version 2)
Quarter: 2021Q1

REPORT INFORMATION
  Report Type: Spontaneous
  Country: DE (occurrence: DE)
  Receive Date: 20201223
  Receipt Date: 20210324
  Transmission Date: 20210419
  Serious: Yes (Other)
  Sender: FDA-Public Use
  Company Number: NVSC2020DE339296

PATIENT
  Sex: Female

DRUGS (1)
  1. EXTAVIA [Suspect]
     Active Substance: INTERFERON BETA-1B
     Indication: PRODUCT USED FOR UNKNOWN INDICATION
     Dosage: UNK
     Route: 065

REACTIONS (27)
  - Histamine intolerance [Unknown]
  - Hypertriglyceridaemia [Unknown]
  - Blood selenium increased [Unknown]
  - Blood immunoglobulin G increased [Unknown]
  - Blood magnesium increased [Unknown]
  - Hypersensitivity [Unknown]
  - Ill-defined disorder [Unknown]
  - Hepatotoxicity [Unknown]
  - Vitamin D deficiency [Unknown]
  - Cardiac disorder [Unknown]
  - Blood zinc decreased [Unknown]
  - Hyperglycaemia [Unknown]
  - Renal failure [Unknown]
  - Vitamin B6 increased [Unknown]
  - Blood copper increased [Unknown]
  - Metabolic disorder [Unknown]
  - Arterial disorder [Unknown]
  - Hypercholesterolaemia [Unknown]
  - Liver disorder [Unknown]
  - Dyslipidaemia [Unknown]
  - Neutrophil count decreased [Unknown]
  - Inflammation [Unknown]
  - Lymphocyte count increased [Unknown]
  - Blood sodium decreased [Unknown]
  - Gamma-glutamyltransferase increased [Unknown]
  - Blood creatine phosphokinase increased [Unknown]
  - Transaminases increased [Unknown]

NARRATIVE: CASE EVENT DATE: 20201214
